FAERS Safety Report 19791448 (Version 1)
Quarter: 2021Q3

REPORT INFORMATION
  Report Type: Report from Study
  Country: ES (occurrence: ES)
  Receive Date: 20210906
  Receipt Date: 20210906
  Transmission Date: 20211014
  Serious: Yes (Other)
  Sender: FDA-Public Use
  Company Number: ES-AUROBINDO-AUR-APL-2021-035047

PATIENT
  Age: 65 Year
  Sex: Female

DRUGS (6)
  1. PERAMPANEL [Interacting]
     Active Substance: PERAMPANEL
     Dosage: 4 MILLIGRAM, DAILY (2 MONTHS)
     Route: 065
  2. GABAPENTIN. [Suspect]
     Active Substance: GABAPENTIN
     Indication: TREMOR
     Dosage: UNK
     Route: 065
  3. PERAMPANEL [Interacting]
     Active Substance: PERAMPANEL
     Dosage: UNK (REVERTED TO 2 MG/DAY)
     Route: 065
  4. PERAMPANEL [Interacting]
     Active Substance: PERAMPANEL
     Dosage: 2 MILLIGRAM, DAILY
     Route: 065
  5. PERAMPANEL [Interacting]
     Active Substance: PERAMPANEL
     Indication: ORTHOSTATIC TREMOR
     Dosage: UNK (2 MG/DAY FOR FIRST MONTH 4 MG/DAY FOR THE REMAINING TWO MONTHS).
     Route: 065
  6. PERAMPANEL [Interacting]
     Active Substance: PERAMPANEL
     Dosage: 2 MILLIGRAM, DAILY (1 MONTHS)
     Route: 065

REACTIONS (5)
  - Weight increased [Unknown]
  - Balance disorder [Unknown]
  - Product use in unapproved indication [Unknown]
  - Drug interaction [Unknown]
  - Gait disturbance [Unknown]
